FAERS Safety Report 4621958-1 (Version None)
Quarter: 2005Q1

REPORT INFORMATION
  Report Type: 
  Country: None (occurrence: None)
  Receive Date: 20050329
  Receipt Date: 20040422
  Transmission Date: 20050727
  Serious: Yes (Hospitalization)
  Sender: FDA-Public Use
  Company Number: US-MERCK-0404USA02010

PATIENT
  Age: 79 Year
  Sex: Female

DRUGS (15)
  1. ZOCOR [Suspect]
     Indication: HYPERCHOLESTEROLAEMIA
     Route: 048
     Dates: start: 20020212, end: 20030528
  2. ZOCOR [Suspect]
     Route: 048
     Dates: start: 20011113, end: 20020211
  3. ZOCOR [Suspect]
     Route: 048
     Dates: end: 20031004
  4. PROTONIX [Concomitant]
     Route: 048
  5. VERAPAMIL [Concomitant]
     Route: 065
  6. CATAPRES-TTS-1 [Concomitant]
     Route: 065
  7. HYDRODIURIL [Concomitant]
     Route: 048
  8. SYNTHROID [Concomitant]
     Route: 065
  9. FOSAMAX [Concomitant]
     Indication: OSTEOPENIA
     Route: 048
     Dates: start: 20030307
  10. CALTRATE + D [Concomitant]
     Route: 065
  11. TYLENOL W/ CODEINE [Concomitant]
     Route: 065
  12. [THERAPY UNSPECIFIED] [Concomitant]
     Route: 065
  13. PREMPRO [Concomitant]
     Route: 065
     Dates: end: 20020901
  14. MONOPRIL [Concomitant]
     Route: 065
  15. LEVOTHROID [Concomitant]
     Route: 065

REACTIONS (30)
  - ALANINE AMINOTRANSFERASE INCREASED [None]
  - ASPARTATE AMINOTRANSFERASE INCREASED [None]
  - BACTERIA URINE IDENTIFIED [None]
  - BLOOD CREATINE PHOSPHOKINASE INCREASED [None]
  - BLOOD PRESSURE SYSTOLIC INCREASED [None]
  - BLOOD URINE PRESENT [None]
  - BUNDLE BRANCH BLOCK RIGHT [None]
  - CERVICAL POLYP [None]
  - CHEST PAIN [None]
  - COLITIS ISCHAEMIC [None]
  - COLONIC POLYP [None]
  - DEHYDRATION [None]
  - DILATATION ATRIAL [None]
  - FALL [None]
  - FIBROADENOMA OF BREAST [None]
  - GASTROINTESTINAL HAEMORRHAGE [None]
  - GASTROOESOPHAGEAL REFLUX DISEASE [None]
  - HYPOCALCAEMIA [None]
  - HYPOKALAEMIA [None]
  - HYPOXIA [None]
  - LEUKOCYTOSIS [None]
  - MITRAL VALVE INCOMPETENCE [None]
  - NAUSEA [None]
  - PROTEIN URINE PRESENT [None]
  - RENAL FAILURE ACUTE [None]
  - RESPIRATORY DISORDER [None]
  - RHABDOMYOLYSIS [None]
  - SINUS BRADYCARDIA [None]
  - VENTRICULAR TACHYCARDIA [None]
  - VOMITING [None]
